FAERS Safety Report 8727704 (Version 4)
Quarter: 2014Q4

REPORT INFORMATION
  Report Type: Spontaneous
  Country: US (occurrence: US)
  Receive Date: 20120816
  Receipt Date: 20141022
  Transmission Date: 20150529
  Serious: Yes (Hospitalization, Other)
  Sender: FDA-Public Use
  Company Number: US-ASTRAZENECA-2012SE39878

PATIENT
  Age: 825 Month
  Sex: Female
  Weight: 56.7 kg

DRUGS (2)
  1. NEXIUM [Suspect]
     Active Substance: ESOMEPRAZOLE MAGNESIUM
     Indication: GASTROOESOPHAGEAL REFLUX DISEASE
     Route: 048
     Dates: end: 20141012
  2. NEXIUM [Suspect]
     Active Substance: ESOMEPRAZOLE MAGNESIUM
     Indication: HIATUS HERNIA
     Route: 048
     Dates: end: 20141012

REACTIONS (12)
  - Pelvic fracture [Recovered/Resolved]
  - Weight increased [Unknown]
  - Activities of daily living impaired [Unknown]
  - Hip fracture [Recovered/Resolved]
  - Ocular vascular disorder [Unknown]
  - Feeling abnormal [Unknown]
  - Fall [Recovered/Resolved]
  - Joint injury [Unknown]
  - Panic reaction [Not Recovered/Not Resolved]
  - Upper limb fracture [Recovered/Resolved]
  - Drug dose omission [Not Recovered/Not Resolved]
  - Visual acuity reduced [Unknown]

NARRATIVE: CASE EVENT DATE: 201208
